FAERS Safety Report 23923744 (Version 2)
Quarter: 2024Q2

REPORT INFORMATION
  Report Type: Other
  Country: US (occurrence: None)
  Receive Date: 20240531
  Receipt Date: 20240610
  Transmission Date: 20240716
  Serious: Yes (Other)
  Sender: FDA-Public Use
  Company Number: US-ROCHE-3572042

PATIENT

DRUGS (9)
  1. RITUXIMAB [Suspect]
     Active Substance: RITUXIMAB
     Indication: Mantle cell lymphoma
     Dosage: EVERY 21 DAYS FOR FOUR CYCLES.
     Route: 042
  2. CYCLOPHOSPHAMIDE [Suspect]
     Active Substance: CYCLOPHOSPHAMIDE
     Indication: Mantle cell lymphoma
     Dosage: EVERY 21 DAYS FOR FOUR CYCLES.
     Route: 042
  3. DOXORUBICIN [Suspect]
     Active Substance: DOXORUBICIN
     Indication: Mantle cell lymphoma
     Dosage: EVERY 21 DAYS FOR FOUR CYCLES.
     Route: 042
  4. VINCRISTINE [Suspect]
     Active Substance: VINCRISTINE
     Indication: Mantle cell lymphoma
     Dosage: EVERY 21 DAYS FOR FOUR CYCLES.
     Route: 042
  5. PREDNISONE [Suspect]
     Active Substance: PREDNISONE
     Indication: Mantle cell lymphoma
     Dosage: ON DAYS 1-5 OR 2-6. EVERY 21 DAYS FOR FOUR CYCLES.
     Route: 048
  6. LENALIDOMIDE [Suspect]
     Active Substance: LENALIDOMIDE
     Indication: Mantle cell lymphoma
     Dosage: ON DAYS 1-14. EVERY 21 DAYS FOR FOUR CYCLES.
     Route: 048
  7. CYTARABINE [Suspect]
     Active Substance: CYTARABINE
     Indication: Mantle cell lymphoma
     Dosage: HIGH DOSE AT 500 - 3,000 MG/SQ.M
     Route: 065
  8. PEGFILGRASTIM [Concomitant]
     Active Substance: PEGFILGRASTIM
     Dosage: ON DAY 2 OF EACH CYCLE
  9. ASPIRIN [Concomitant]
     Active Substance: ASPIRIN
     Indication: Thrombosis prophylaxis
     Dosage: THROUGHOUT THE FOUR CYCLES.
     Route: 048

REACTIONS (28)
  - Haematotoxicity [Unknown]
  - Pneumonia [Unknown]
  - Neutropenia [Unknown]
  - Sepsis [Unknown]
  - Constipation [Unknown]
  - Dysgeusia [Unknown]
  - Nausea [Unknown]
  - Skin infection [Unknown]
  - Anaemia [Unknown]
  - Thrombocytopenia [Unknown]
  - Febrile neutropenia [Unknown]
  - Metapneumovirus infection [Unknown]
  - Cytopenia [Unknown]
  - Rash [Unknown]
  - Diarrhoea [Unknown]
  - Mucosal inflammation [Unknown]
  - Fatigue [Unknown]
  - Decreased appetite [Unknown]
  - Arthralgia [Unknown]
  - Myalgia [Unknown]
  - Peripheral sensory neuropathy [Unknown]
  - Memory impairment [Unknown]
  - Dyspnoea [Unknown]
  - Dysphonia [Unknown]
  - Nasal congestion [Unknown]
  - Alopecia [Unknown]
  - Dry skin [Unknown]
  - Pruritus [Unknown]
